FAERS Safety Report 7605445-4 (Version None)
Quarter: 2011Q3

REPORT INFORMATION
  Report Type: 
  Country: None (occurrence: None)
  Receive Date: 20110713
  Receipt Date: 20110706
  Transmission Date: 20111222
  Serious: Yes (Other)
  Sender: FDA-Public Use
  Company Number: US-PFIZER INC-2007071414

PATIENT
  Sex: Female

DRUGS (2)
  1. GLUCOTROL [Suspect]
     Dosage: UNK
  2. LEVEMIR [Suspect]

REACTIONS (2)
  - DRUG INEFFECTIVE [None]
  - BLOOD GLUCOSE INCREASED [None]
